FAERS Safety Report 24442607 (Version 1)
Quarter: 2024Q4

REPORT INFORMATION
  Report Type: Report from Study
  Country: ZA (occurrence: ZA)
  Receive Date: 20241016
  Receipt Date: 20241016
  Transmission Date: 20250115
  Serious: Yes (Hospitalization)
  Sender: TAKEDA
  Company Number: ZA-TAKEDA-2024TUS013766

PATIENT
  Age: 6 Year
  Sex: Female

DRUGS (5)
  1. HUMAN IMMUNOGLOBULIN G [Suspect]
     Active Substance: HUMAN IMMUNOGLOBULIN G
     Indication: Immunodeficiency common variable
     Dosage: 10 MILLILITER, Q2WEEKS
     Route: 058
     Dates: start: 20231215
  2. HUMAN IMMUNOGLOBULIN G [Suspect]
     Active Substance: HUMAN IMMUNOGLOBULIN G
     Indication: Immune system disorder
     Dosage: 5 GRAM, Q2WEEKS
     Route: 058
     Dates: start: 20240202
  3. HUMAN IMMUNOGLOBULIN G [Suspect]
     Active Substance: HUMAN IMMUNOGLOBULIN G
     Dosage: 10 MILLILITER, Q2WEEKS
     Route: 058
  4. HUMAN IMMUNOGLOBULIN G [Suspect]
     Active Substance: HUMAN IMMUNOGLOBULIN G
     Dosage: 10 MILLILITER, Q2WEEKS
     Route: 058
  5. HUMAN IMMUNOGLOBULIN G [Suspect]
     Active Substance: HUMAN IMMUNOGLOBULIN G
     Dosage: 10 MILLILITER, Q2WEEKS
     Route: 058

REACTIONS (13)
  - Blood iron abnormal [Recovering/Resolving]
  - Ammonia increased [Recovering/Resolving]
  - Allergy to arthropod sting [Recovering/Resolving]
  - Hepatomegaly [Recovering/Resolving]
  - General physical health deterioration [Recovered/Resolved]
  - Anger [Recovered/Resolved]
  - Dysuria [Not Recovered/Not Resolved]
  - Productive cough [Not Recovered/Not Resolved]
  - Body temperature decreased [Recovering/Resolving]
  - Viral infection [Recovering/Resolving]
  - Epistaxis [Recovering/Resolving]
  - Abdominal pain [Not Recovered/Not Resolved]
  - Fatigue [Recovered/Resolved]

NARRATIVE: CASE EVENT DATE: 20240623
